FAERS Safety Report 10731754 (Version 2)
Quarter: 2015Q4

REPORT INFORMATION
  Report Type: Report from Study
  Country: GB (occurrence: GB)
  Receive Date: 20150123
  Receipt Date: 20151215
  Transmission Date: 20160304
  Serious: Yes (Other)
  Sender: FDA-Public Use
  Company Number: GB-ROCHE-1524139

PATIENT
  Sex: Female

DRUGS (2)
  1. ROACTEMRA [Suspect]
     Active Substance: TOCILIZUMAB
     Indication: RHEUMATOID ARTHRITIS
     Route: 058
  2. ROACTEMRA [Suspect]
     Active Substance: TOCILIZUMAB
     Dosage: LAST DOSE WAS GIVEN ON 13/JAN/2015.
     Route: 058
     Dates: start: 20141216

REACTIONS (3)
  - Synovial rupture [Unknown]
  - Peripheral swelling [Unknown]
  - Pain in extremity [Unknown]
